FAERS Safety Report 8481995-6 (Version None)
Quarter: 2012Q3

REPORT INFORMATION
  Report Type: 
  Country: None (occurrence: None)
  Receive Date: 20120702
  Receipt Date: 20120622
  Transmission Date: 20120928
  Serious: Yes (Other)
  Sender: FDA-Public Use
  Company Number: PHHY2012BE050649

PATIENT
  Age: 61 Year
  Sex: Female

DRUGS (7)
  1. KEPPRA [Concomitant]
     Indication: EPILEPSY
     Dosage: 500 MG, BID
  2. PHENOBARBITAL TAB [Concomitant]
     Indication: EPILEPSY
     Dosage: 100 MG, QD
  3. TRAZODONE HCL [Concomitant]
     Dosage: 50 MG, DAILY
  4. FOLAVIT [Concomitant]
     Dosage: 4 MG, DAILY
  5. STEOVIT FORTE [Concomitant]
     Dosage: 1000 MG /800 U ONCE DAILY
  6. AFINITOR [Suspect]
     Indication: RENAL CELL CARCINOMA
     Dosage: 10 MG, QD
     Dates: start: 20091001
  7. MOVIPREP [Concomitant]

REACTIONS (7)
  - MITRAL VALVE INCOMPETENCE [None]
  - AGGRESSION [None]
  - TRICUSPID VALVE INCOMPETENCE [None]
  - PLEURAL EFFUSION [None]
  - PARANOIA [None]
  - CONCOMITANT DISEASE PROGRESSION [None]
  - CONFUSIONAL STATE [None]
